FAERS Safety Report 12533196 (Version 1)
Quarter: 2016Q3

REPORT INFORMATION
  Report Type: Spontaneous
  Country: US (occurrence: US)
  Receive Date: 20160706
  Receipt Date: 20160706
  Transmission Date: 20161109
  Serious: No
  Sender: FDA-Public Use
  Company Number: US-PURDUE-USA-2015-0127191

PATIENT
  Sex: Female

DRUGS (1)
  1. BUTRANS [Suspect]
     Active Substance: BUPRENORPHINE
     Indication: PRODUCT USED FOR UNKNOWN INDICATION
     Dosage: 5 MCG/HR, WEEKLY
     Route: 062
     Dates: start: 201510

REACTIONS (4)
  - Inappropriate schedule of drug administration [Recovered/Resolved]
  - Pruritus generalised [Recovered/Resolved]
  - Pain [Unknown]
  - Product physical issue [Unknown]

NARRATIVE: CASE EVENT DATE: 201510
